FAERS Safety Report 12573193 (Version 1)
Quarter: 2016Q3

REPORT INFORMATION
  Report Type: Spontaneous
  Country: US (occurrence: None)
  Receive Date: 20160719
  Receipt Date: 20160719
  Transmission Date: 20161109
  Serious: Yes (Hospitalization)
  Sender: FDA-Public Use
  Company Number: None

PATIENT
  Age: 72 Year
  Sex: Female
  Weight: 109.32 kg

DRUGS (1)
  1. BYDUREON [Suspect]
     Active Substance: EXENATIDE

REACTIONS (5)
  - Swelling face [None]
  - Rash [None]
  - Urticaria [None]
  - Lip swelling [None]
  - Injection site urticaria [None]

NARRATIVE: CASE EVENT DATE: 20160717
